FAERS Safety Report 24298242 (Version 2)
Quarter: 2024Q4

REPORT INFORMATION
  Report Type: Report from Study
  Country: GB (occurrence: GB)
  Receive Date: 20240909
  Receipt Date: 20241011
  Transmission Date: 20250115
  Serious: No
  Sender: ALNYLAM PHARMACEUTICALS
  Company Number: GB-ALNYLAM PHARMACEUTICALS, INC.-ALN-2024-004922

PATIENT

DRUGS (1)
  1. OXLUMO [Suspect]
     Active Substance: LUMASIRAN
     Indication: Primary hyperoxaluria
     Dosage: UNK
     Route: 065

REACTIONS (1)
  - No adverse event [Unknown]
